FAERS Safety Report 5195837-8 (Version None)
Quarter: 2006Q4

REPORT INFORMATION
  Report Type: 
  Country: None (occurrence: None)
  Receive Date: 20061227
  Receipt Date: 20061211
  Transmission Date: 20070319
  Serious: Yes (Other)
  Sender: FDA-Public Use
  Company Number: US018778

PATIENT
  Age: 23 Year
  Sex: Female

DRUGS (2)
  1. ACTIQ [Suspect]
     Indication: MIGRAINE
     Dosage: 9600 UG QD BUCCAL   A FEW MONTHS
     Route: 002
     Dates: start: 20020701
  2. NORCO [Suspect]
     Dosage: 8 PER DAY

REACTIONS (4)
  - DRUG DEPENDENCE [None]
  - DRUG EXPOSURE DURING PREGNANCY [None]
  - EUPHORIC MOOD [None]
  - IMPRISONMENT [None]
